FAERS Safety Report 9611549 (Version 2)
Quarter: 2014Q1

REPORT INFORMATION
  Report Type: Spontaneous
  Country: US (occurrence: US)
  Receive Date: 20131010
  Receipt Date: 20140326
  Transmission Date: 20141002
  Serious: Yes (Disabling, Other)
  Sender: FDA-Public Use
  Company Number: US-JNJFOC-20130917317

PATIENT
  Age: 12 Year
  Sex: Male

DRUGS (5)
  1. ACETYLSALICYLIC ACID [Suspect]
     Indication: JUVENILE IDIOPATHIC ARTHRITIS
     Route: 065
  2. IBUPROFEN [Suspect]
     Indication: JUVENILE IDIOPATHIC ARTHRITIS
     Route: 065
  3. GOLD SODIUM THIOMALATE [Suspect]
     Indication: JUVENILE IDIOPATHIC ARTHRITIS
     Route: 065
  4. TOLMETIN [Suspect]
     Indication: JUVENILE IDIOPATHIC ARTHRITIS
     Route: 065
  5. PREDNISONE [Suspect]
     Indication: JUVENILE IDIOPATHIC ARTHRITIS
     Route: 065

REACTIONS (1)
  - Renal papillary necrosis [Unknown]
